FAERS Safety Report 4803615-1 (Version None)
Quarter: 2005Q4

REPORT INFORMATION
  Report Type: 
  Country: None (occurrence: None)
  Receive Date: 20051014
  Receipt Date: 20050912
  Transmission Date: 20060501
  Serious: Yes (Life-Threatening)
  Sender: FDA-Public Use
  Company Number: 2005139234

PATIENT
  Age: 72 Year
  Sex: Female

DRUGS (7)
  1. CABERGOLINE [Suspect]
     Indication: PARKINSON'S DISEASE
     Dosage: (1 MG, DAILY), ORAL
     Route: 048
     Dates: start: 20040704, end: 20040705
  2. SINEMET [Concomitant]
  3. SYMMETREL [Concomitant]
  4. DOTHIEPIN HYDROCHLORIDE [Concomitant]
  5. ENALAPRIL MALEATE [Concomitant]
  6. BACLOFEN [Concomitant]
  7. PANTOPRAZOLE SODIUM [Concomitant]

REACTIONS (2)
  - PNEUMONITIS [None]
  - RESPIRATORY FAILURE [None]
